FAERS Safety Report 9626624 (Version 1)
Quarter: 2013Q4

REPORT INFORMATION
  Report Type: Spontaneous
  Country: FR (occurrence: FR)
  Receive Date: 20131016
  Receipt Date: 20131016
  Transmission Date: 20140711
  Serious: Yes (Disabling)
  Sender: FDA-Public Use
  Company Number: FR-PFIZER INC-2013295464

PATIENT
  Age: 64 Year
  Sex: Female

DRUGS (9)
  1. TRIATEC [Suspect]
     Indication: HYPERTENSION
     Dosage: 2.5 MG, DAILY
     Route: 048
     Dates: start: 201005
  2. NILOTINIB [Suspect]
     Indication: CHRONIC MYELOID LEUKAEMIA
     Dosage: 400 MG, DAILY
     Route: 048
     Dates: start: 20110606
  3. NILOTINIB [Suspect]
     Dosage: 400 MG, 2X/DAY
     Route: 048
     Dates: end: 201212
  4. NILOTINIB [Suspect]
     Dosage: 800 MG, DAILY
     Route: 048
  5. NILOTINIB [Suspect]
     Dosage: 400 MG, DAILY
     Route: 048
     Dates: start: 201306
  6. LEVOTHYROX [Suspect]
     Indication: HYPOTHYROIDISM
     Dosage: 1 DF, DAILY
     Route: 048
     Dates: start: 201305
  7. GLIVEC [Concomitant]
     Dosage: UNK
     Dates: start: 201212
  8. INTERFERON [Concomitant]
     Dosage: UNK
     Dates: end: 20020826
  9. ARACYTINE [Concomitant]
     Dosage: UNK
     Dates: end: 20020826

REACTIONS (4)
  - Pain in extremity [Not Recovered/Not Resolved]
  - Intermittent claudication [Not Recovered/Not Resolved]
  - Peripheral arterial occlusive disease [Not Recovered/Not Resolved]
  - Asthenia [Unknown]
